FAERS Safety Report 8554881-0 (Version None)
Quarter: 2012Q3

REPORT INFORMATION
  Report Type: 
  Country: None (occurrence: None)
  Receive Date: 20120731
  Receipt Date: 20120724
  Transmission Date: 20120928
  Serious: Yes (Other)
  Sender: FDA-Public Use
  Company Number: FR-PFIZER INC-2012178555

PATIENT
  Age: 71 Year
  Sex: Female

DRUGS (1)
  1. XALATAN [Suspect]
     Dosage: 1 GTT, 1X/DAY IN EACH EYE
     Route: 047

REACTIONS (1)
  - BASAL CELL CARCINOMA [None]
